FAERS Safety Report 7981600-9 (Version None)
Quarter: 2011Q4

REPORT INFORMATION
  Report Type: 
  Country: None (occurrence: None)
  Receive Date: 20111215
  Receipt Date: 20111206
  Transmission Date: 20120403
  Serious: Yes (Other)
  Sender: FDA-Public Use
  Company Number: JP-BRISTOL-MYERS SQUIBB COMPANY-15740582

PATIENT
  Age: 74 Year
  Sex: Female

DRUGS (9)
  1. LASIX [Suspect]
     Indication: HYPERTENSION
     Dosage: 20MG:UNK-01JUL10, 10MG:02JUL10-UNK.(DOSE REDUCED)
  2. CONIEL [Suspect]
     Indication: HYPERTENSION
     Dosage: 12MG: UNK-25AUG10, 8MG: 26AUG10-UNK.(DOSE REDUCED)
  3. DRENISON [Concomitant]
     Indication: DERMATITIS
     Dates: start: 20100614, end: 20110127
  4. PLETAL [Concomitant]
     Dates: end: 20110317
  5. HIRUDOID [Concomitant]
     Indication: DERMATITIS
     Dates: start: 20100607, end: 20110317
  6. DOXAZOSIN MESYLATE [Suspect]
     Indication: HYPERTENSION
  7. ALLOPURINOL [Suspect]
     Indication: HYPERURICAEMIA
     Dates: start: 20100510, end: 20100826
  8. ASPIRIN [Concomitant]
  9. IRBESARTAN [Suspect]
     Indication: HYPERTENSION
     Dosage: 28NOV09-16FEB11, DOSE REDUSED TO 100MG;17FEB11-18MAR11
     Route: 048
     Dates: start: 20091128, end: 20110318

REACTIONS (3)
  - DERMATITIS [None]
  - HYPOTENSION [None]
  - HYPERURICAEMIA [None]
